FAERS Safety Report 21698670 (Version 2)
Quarter: 2022Q4

REPORT INFORMATION
  Report Type: Report from Study
  Country: US (occurrence: None)
  Receive Date: 20221208
  Receipt Date: 20221212
  Transmission Date: 20230112
  Serious: Yes (Hospitalization)
  Sender: FDA-Public Use
  Company Number: US-Merck Healthcare KGaA-9370172

PATIENT
  Age: 69 Year
  Sex: Female

DRUGS (1)
  1. MAVENCLAD [Suspect]
     Active Substance: CLADRIBINE
     Indication: Multiple sclerosis
     Dosage: YEAR ONE MONTH ONE THERAPY
     Route: 048
     Dates: start: 20221118, end: 20221122

REACTIONS (5)
  - Subcutaneous abscess [Unknown]
  - Dehydration [Unknown]
  - Lymphopenia [Unknown]
  - Feeling abnormal [Unknown]
  - Dysarthria [Unknown]

NARRATIVE: CASE EVENT DATE: 20221202
